FAERS Safety Report 4499126-6 (Version None)
Quarter: 2004Q4

REPORT INFORMATION
  Report Type: 
  Country: None (occurrence: None)
  Receive Date: 20041111
  Receipt Date: 20041104
  Transmission Date: 20050328
  Serious: Yes (Other)
  Sender: FDA-Public Use
  Company Number: US-JNJFOC-20040501797

PATIENT
  Age: 39 Year
  Sex: Female

DRUGS (15)
  1. DURAGESIC [Suspect]
     Route: 062
  2. DURAGESIC [Suspect]
     Route: 062
  3. DURAGESIC [Suspect]
     Route: 062
  4. DURAGESIC [Suspect]
     Route: 062
  5. DURAGESIC [Suspect]
     Route: 062
  6. LODINE [Concomitant]
     Indication: PAIN
  7. BACLOFEN [Concomitant]
     Indication: MUSCLE RELAXANT THERAPY
     Route: 049
  8. AMITRIPTYLINE HCL [Concomitant]
     Route: 049
  9. CLONAZEPAM [Concomitant]
     Route: 049
  10. ZOMIG [Concomitant]
     Route: 049
  11. ZANAFLEX [Concomitant]
     Indication: MUSCLE RELAXANT THERAPY
     Route: 049
  12. TRIVORA-21 [Concomitant]
     Route: 049
  13. TRIVORA-21 [Concomitant]
     Route: 049
  14. MIRALAX [Concomitant]
     Indication: LAXATIVE SUPPORTIVE CARE
     Dosage: 17 G, ONCE TO TWICE DAILY, AS NECESSARY
     Route: 049
  15. STOOL SOFTENER [Concomitant]
     Route: 049

REACTIONS (17)
  - ANOREXIA [None]
  - APPLICATION SITE DERMATITIS [None]
  - ASTHENIA [None]
  - BEDRIDDEN [None]
  - DIZZINESS [None]
  - FALL [None]
  - FATIGUE [None]
  - HEAD INJURY [None]
  - HEAT STROKE [None]
  - IMPAIRED DRIVING ABILITY [None]
  - LETHARGY [None]
  - LOSS OF CONSCIOUSNESS [None]
  - OVERDOSE [None]
  - ROCKY MOUNTAIN SPOTTED FEVER [None]
  - TOOTH INJURY [None]
  - VOMITING [None]
  - WEIGHT DECREASED [None]
